FAERS Safety Report 7819314-8 (Version None)
Quarter: 2011Q4

REPORT INFORMATION
  Report Type: 
  Country: None (occurrence: None)
  Receive Date: 20111018
  Receipt Date: 20110113
  Transmission Date: 20120403
  Serious: No
  Sender: FDA-Public Use
  Company Number: US-ASTRAZENECA-2011SE02292

PATIENT
  Age: 65 Year
  Sex: Male

DRUGS (5)
  1. SPIRIVA [Concomitant]
  2. SYMBICORT [Suspect]
     Indication: CHRONIC OBSTRUCTIVE PULMONARY DISEASE
     Dosage: 160-4.5 MCG TWO TIMES A DAY
     Route: 055
     Dates: start: 20110101
  3. AMITRIPTYLINE HCL [Concomitant]
  4. POTASSIUM [Concomitant]
  5. CRESTOR [Concomitant]

REACTIONS (4)
  - CHOKING [None]
  - COUGH [None]
  - INCREASED UPPER AIRWAY SECRETION [None]
  - RETCHING [None]
